FAERS Safety Report 4278868-1 (Version None)
Quarter: 2004Q1

REPORT INFORMATION
  Report Type: 
  Country: None (occurrence: None)
  Receive Date: 20040122
  Receipt Date: 20040122
  Transmission Date: 20041129
  Serious: No
  Sender: FDA-Public Use
  Company Number: None

PATIENT
  Sex: Male
  Weight: 113.8529 kg

DRUGS (2)
  1. PAXIL [Suspect]
     Indication: ANXIETY DISORDER
     Dosage: 20 MG AT NIGHT ORAL
     Route: 048
     Dates: start: 19990101, end: 20040122
  2. PAXIL [Suspect]
     Indication: AUTISM
     Dosage: 20 MG AT NIGHT ORAL
     Route: 048
     Dates: start: 19990101, end: 20040122

REACTIONS (1)
  - DRUG WITHDRAWAL SYNDROME [None]
